FAERS Safety Report 6608451-1 (Version None)
Quarter: 2010Q1

REPORT INFORMATION
  Report Type: 
  Country: None (occurrence: None)
  Receive Date: 20100226
  Receipt Date: 20100226
  Transmission Date: 20100710
  Serious: No
  Sender: FDA-Public Use
  Company Number: None

PATIENT
  Age: 42 Year
  Sex: Female
  Weight: 85.2762 kg

DRUGS (3)
  1. LITHIUM CARBONATE [Suspect]
     Dosage: 1650MG DAY PO
     Route: 048
  2. SALSALATE [Concomitant]
  3. ABILIFY [Concomitant]

REACTIONS (1)
  - DIABETES INSIPIDUS [None]
